FAERS Safety Report 5823825-4 (Version None)
Quarter: 2008Q3

REPORT INFORMATION
  Report Type: 
  Country: None (occurrence: None)
  Receive Date: 20080725
  Receipt Date: 20080717
  Transmission Date: 20090109
  Serious: Yes (Hospitalization)
  Sender: FDA-Public Use
  Company Number: CZ-PFIZER INC-2008060352

PATIENT
  Age: 78 Year
  Sex: Male
  Weight: 70 kg

DRUGS (11)
  1. CADUET [Suspect]
     Indication: ILL-DEFINED DISORDER
     Dosage: TEXT:5/10 MG; 5/10 MG
     Route: 048
  2. ISOSORBIDE MONONITRATE [Concomitant]
     Route: 048
  3. COVERSUM COMBI [Concomitant]
     Route: 048
  4. ANOPYRIN [Concomitant]
     Route: 048
  5. GLUCOPHAGE [Concomitant]
     Route: 048
  6. ALL OTHER THERAPEUTIC PRODUCTS [Concomitant]
     Route: 048
  7. ALL OTHER THERAPEUTIC PRODUCTS [Concomitant]
     Route: 058
  8. AMLODIPINE BESYLATE [Concomitant]
     Route: 048
  9. ALL OTHER THERAPEUTIC PRODUCTS [Concomitant]
     Route: 058
  10. ATORVASTATIN CALCIUM [Concomitant]
     Route: 048
     Dates: end: 20070327
  11. FELODIPINE [Concomitant]
     Route: 048
     Dates: end: 20070327

REACTIONS (1)
  - CORONARY ARTERY DISEASE [None]
